FAERS Safety Report 8423341-X (Version None)
Quarter: 2012Q2

REPORT INFORMATION
  Report Type: 
  Country: None (occurrence: None)
  Receive Date: 20120608
  Receipt Date: 20120531
  Transmission Date: 20120825
  Serious: Yes (Death, Hospitalization, Other)
  Sender: FDA-Public Use
  Company Number: IN-PFIZER INC-K201100163

PATIENT
  Age: 59 Year
  Sex: Female

DRUGS (6)
  1. ALTACE [Suspect]
     Indication: HYPERTENSION
     Dosage: 5 MG, 1X/DAY
     Route: 048
  2. SAXAGLIPTIN [Suspect]
     Indication: DIABETES MELLITUS
     Dosage: 5 MG, 1X/DAY
     Route: 048
  3. GLIMEPIRIDE [Concomitant]
     Indication: DIABETES MELLITUS
  4. MULTI-VITAMIN [Concomitant]
     Dosage: UNK
  5. METFORMIN HYDROCHLORIDE [Suspect]
     Indication: DIABETES MELLITUS
     Dosage: 1 G, 2X/DAY
     Route: 048
  6. CALCIUM [Concomitant]

REACTIONS (8)
  - ANGIOEDEMA [None]
  - ANAPHYLACTIC REACTION [None]
  - BLOOD SODIUM DECREASED [None]
  - DYSPNOEA [None]
  - CHILLS [None]
  - SWELLING FACE [None]
  - URINARY TRACT INFECTION [None]
  - PYREXIA [None]
